FAERS Safety Report 25170345 (Version 1)
Quarter: 2025Q2

REPORT INFORMATION
  Report Type: Spontaneous
  Country: SE (occurrence: SE)
  Receive Date: 20250408
  Receipt Date: 20250408
  Transmission Date: 20250716
  Serious: Yes (Hospitalization, Other)
  Sender: Haleon PLC
  Company Number: SE-HALEON-2236614

PATIENT
  Age: 21 Year
  Sex: Female

DRUGS (1)
  1. VOLTAREN [Suspect]
     Active Substance: DICLOFENAC SODIUM
     Indication: Pain in extremity

REACTIONS (8)
  - Sepsis [Recovering/Resolving]
  - Necrotising fasciitis [Recovering/Resolving]
  - Pyrexia [Recovering/Resolving]
  - Hyperhidrosis [Recovering/Resolving]
  - Chills [Recovering/Resolving]
  - Illness [Recovering/Resolving]
  - Peripheral swelling [Recovering/Resolving]
  - Gangrene [Recovering/Resolving]
